FAERS Safety Report 26095836 (Version 1)
Quarter: 2025Q4

REPORT INFORMATION
  Report Type: Spontaneous
  Country: US (occurrence: US)
  Receive Date: 20251127
  Receipt Date: 20251127
  Transmission Date: 20260118
  Serious: Yes (Hospitalization)
  Sender: CHATTEM
  Company Number: US-OPELLA-2025OHG033498

PATIENT
  Age: 78 Year
  Sex: Male

DRUGS (1)
  1. ICY HOT PAIN RELIEVING CREAM [Suspect]
     Active Substance: MENTHOL\METHYL SALICYLATE
     Indication: Product used for unknown indication
     Dosage: STRENGTH - 30% METHYL SALICYLATE AND 10% MENTHOL
     Route: 061

REACTIONS (1)
  - Toxicity to various agents [Recovered/Resolved]
